FAERS Safety Report 8616175-4 (Version None)
Quarter: 2012Q3

REPORT INFORMATION
  Report Type: 
  Country: None (occurrence: None)
  Receive Date: 20120809
  Receipt Date: 20120802
  Transmission Date: 20120928
  Serious: Yes (Death)
  Sender: FDA-Public Use
  Company Number: 2010001473

PATIENT
  Age: 67 Year
  Sex: Male

DRUGS (10)
  1. LASIX [Concomitant]
  2. POTASSIUM (POTASSIUM) [Concomitant]
  3. CELEBREX [Concomitant]
  4. AMARYL [Concomitant]
  5. PLAVIX [Concomitant]
  6. FLOMAX [Concomitant]
  7. TARCEVA [Suspect]
     Indication: NON-SMALL CELL LUNG CANCER
     Dosage: 150 MG, UID/QD, ORAL, 50 MG, UID/QD, ORAL
     Route: 048
     Dates: start: 20100407
  8. TARCEVA [Suspect]
     Indication: NON-SMALL CELL LUNG CANCER
     Dosage: 150 MG, UID/QD, ORAL, 50 MG, UID/QD, ORAL
     Route: 048
     Dates: start: 20100408, end: 20100823
  9. ALBUTEROL [Concomitant]
  10. METOPROLOL TARTRATE [Concomitant]

REACTIONS (4)
  - RASH [None]
  - RASH VESICULAR [None]
  - BLISTER [None]
  - SKIN EXFOLIATION [None]
